FAERS Safety Report 8442796-8 (Version None)
Quarter: 2012Q2

REPORT INFORMATION
  Report Type: 
  Country: None (occurrence: None)
  Receive Date: 20120615
  Receipt Date: 20120604
  Transmission Date: 20120825
  Serious: Yes (Other)
  Sender: FDA-Public Use
  Company Number: US-SANOFI-AVENTIS-2012SA039872

PATIENT
  Sex: Female

DRUGS (1)
  1. LANTUS [Suspect]
     Route: 058
     Dates: start: 20111201

REACTIONS (4)
  - DIZZINESS [None]
  - DYSPNOEA [None]
  - BLOOD URINE PRESENT [None]
  - ABDOMINAL DISTENSION [None]
